FAERS Safety Report 18390255 (Version 1)
Quarter: 2020Q4

REPORT INFORMATION
  Report Type: Spontaneous
  Country: DK (occurrence: DK)
  Receive Date: 20201015
  Receipt Date: 20201015
  Transmission Date: 20210114
  Serious: Yes (Death)
  Sender: FDA-Public Use
  Company Number: DK-MALLINCKRODT-T202004976

PATIENT
  Age: 25 Year
  Sex: Female

DRUGS (1)
  1. UVADEX [Suspect]
     Active Substance: METHOXSALEN
     Indication: GRAFT VERSUS HOST DISEASE
     Dosage: UNK (EXTRACORPOREAL)
     Route: 050

REACTIONS (6)
  - Bacterial infection [Fatal]
  - Viral infection [Fatal]
  - Pneumothorax [Fatal]
  - Fungal infection [Fatal]
  - Product use in unapproved indication [Unknown]
  - COVID-19 [Fatal]

NARRATIVE: CASE EVENT DATE: 202007
